FAERS Safety Report 7314940-7 (Version None)
Quarter: 2011Q1

REPORT INFORMATION
  Report Type: 
  Country: None (occurrence: None)
  Receive Date: 20110225
  Receipt Date: 20100212
  Transmission Date: 20110831
  Serious: No
  Sender: FDA-Public Use
  Company Number: US-MYLANLABS-2010S1002251

PATIENT
  Age: 15 Year
  Sex: Male

DRUGS (5)
  1. AMNESTEEM [Suspect]
     Dates: start: 20100101, end: 20100204
  2. FLONASE [Concomitant]
  3. ZYRTEC [Concomitant]
  4. AMNESTEEM [Suspect]
     Indication: ACNE
     Dates: start: 20100101, end: 20100101
  5. AUGMENTIN '125' [Concomitant]

REACTIONS (5)
  - DISTURBANCE IN ATTENTION [None]
  - SINUSITIS [None]
  - CHAPPED LIPS [None]
  - DRY SKIN [None]
  - DEPRESSION [None]
